FAERS Safety Report 8838933 (Version 1)
Quarter: 2012Q4

REPORT INFORMATION
  Report Type: 
  Country: US (occurrence: US)
  Receive Date: 20121015
  Receipt Date: 20121015
  Transmission Date: 20130627
  Serious: Yes (Hospitalization, Other)
  Sender: FDA-Public Use
  Company Number: US-PAR PHARMACEUTICAL, INC-2012SCPR004649

PATIENT

DRUGS (8)
  1. CLONAZEPAM [Suspect]
     Indication: DEPRESSION
     Dosage: UNK, Unknown
     Route: 045
  2. CLONAZEPAM [Suspect]
     Indication: ANXIETY
  3. ESCITALOPRAM [Suspect]
     Indication: DEPRESSION
     Dosage: 20 mg, / day
     Route: 045
  4. ESCITALOPRAM [Suspect]
     Indication: ANXIETY
  5. QUETIAPINE [Suspect]
     Indication: DEPRESSION
     Dosage: UNK, Unknown
     Route: 045
  6. QUETIAPINE [Suspect]
     Indication: ANXIETY
  7. PERCOCET [Suspect]
     Indication: PRODUCT USED FOR UNKNOWN INDICATION
     Dosage: UNK, Unknown
     Route: 045
  8. COCAINE [Suspect]
     Indication: SUBSTANCE USE
     Dosage: UNK, Unknown
     Route: 065

REACTIONS (2)
  - Serotonin syndrome [Recovering/Resolving]
  - Drug administration error [Unknown]
